FAERS Safety Report 7886224 (Version 6)
Quarter: 2012Q4

REPORT INFORMATION
  Report Type: 
  Country: FR (occurrence: FR)
  Receive Date: 20110405
  Receipt Date: 20121026
  Transmission Date: 20130627
  Serious: Yes (Hospitalization, Other)
  Sender: FDA-Public Use
  Company Number: PHHY2011FR26319

PATIENT
  Age: 61 Year
  Sex: Female

DRUGS (5)
  1. RASILEZ [Suspect]
     Indication: HYPERTENSION
     Dosage: 150 mg, QD
     Route: 048
     Dates: start: 201102, end: 20110311
  2. LYRICA [Concomitant]
  3. TEGRETOL [Concomitant]
  4. MYSOLINE [Concomitant]
  5. URBANYL [Concomitant]

REACTIONS (4)
  - Drug-induced liver injury [Recovering/Resolving]
  - Blood iron increased [Unknown]
  - Transferrin increased [Unknown]
  - Serum ferritin increased [Unknown]
